FAERS Safety Report 4484979-8 (Version None)
Quarter: 2004Q3

REPORT INFORMATION
  Report Type: 
  Country: None (occurrence: None)
  Receive Date: 20040921
  Receipt Date: 20031001
  Transmission Date: 20050211
  Serious: Yes (Hospitalization, Other)
  Sender: FDA-Public Use
  Company Number: 163-20785-03100055

PATIENT
  Age: 55 Year
  Sex: Male

DRUGS (5)
  1. THALOMID [Suspect]
     Indication: MULTIPLE MYELOMA
     Dosage: 200 MG, DAILY, ORAL
     Route: 048
     Dates: start: 20021001
  2. COUMADIN [Concomitant]
  3. SYNTHROID [Concomitant]
  4. TIMOPTIC EYE DROPS (TIMOLOL MALEATE) [Concomitant]
  5. PRANDIN [Concomitant]

REACTIONS (3)
  - FALL [None]
  - HEART RATE DECREASED [None]
  - OEDEMA PERIPHERAL [None]
